FAERS Safety Report 13965662 (Version 2)
Quarter: 2017Q4

REPORT INFORMATION
  Report Type: Spontaneous
  Country: US (occurrence: US)
  Receive Date: 20170913
  Receipt Date: 20171108
  Transmission Date: 20180320
  Serious: Yes (Hospitalization, Other)
  Sender: FDA-Public Use
  Company Number: US-PFIZER INC-2017390628

PATIENT
  Age: 17 Year
  Sex: Male
  Weight: 68.4 kg

DRUGS (2)
  1. BENEFIX [Suspect]
     Active Substance: COAGULATION FACTOR IX RECOMBINANT HUMAN\ISOPROPYL ALCOHOL
     Indication: HAEMOPHILIA
     Dosage: 3000 IU, 1X/DAY
     Route: 042
     Dates: start: 20170915, end: 20171010
  2. BENEFIX [Suspect]
     Active Substance: COAGULATION FACTOR IX RECOMBINANT HUMAN\ISOPROPYL ALCOHOL
     Indication: HAEMARTHROSIS
     Dosage: UNK (3000 EVERY 2 DAYS)

REACTIONS (3)
  - Haemorrhage [Recovered/Resolved]
  - Joint range of motion decreased [Recovered/Resolved]
  - Weight bearing difficulty [Recovered/Resolved]

NARRATIVE: CASE EVENT DATE: 20170915
